FAERS Safety Report 8450109-0 (Version None)
Quarter: 2012Q2

REPORT INFORMATION
  Report Type: 
  Country: None (occurrence: None)
  Receive Date: 20120620
  Receipt Date: 20120614
  Transmission Date: 20120825
  Serious: Yes (Hospitalization, Other)
  Sender: FDA-Public Use
  Company Number: US-NAPPMUNDI-USA-2012-0088691

PATIENT
  Sex: Female

DRUGS (1)
  1. OXYCODONE HCL [Suspect]
     Indication: ARTHRALGIA
     Dosage: 80 MG, DAILY

REACTIONS (2)
  - DRUG WITHDRAWAL SYNDROME [None]
  - HIP ARTHROPLASTY [None]
